FAERS Safety Report 4492964-5 (Version None)
Quarter: 2004Q4

REPORT INFORMATION
  Report Type: 
  Country: None (occurrence: None)
  Receive Date: 20041102
  Receipt Date: 20041019
  Transmission Date: 20050328
  Serious: Yes (Death, Hospitalization)
  Sender: FDA-Public Use
  Company Number: F01200200092

PATIENT
  Age: 50 Year
  Sex: Female

DRUGS (3)
  1. (OXALIPLATIN) - SOLUTION - 170MG [Suspect]
     Indication: COLORECTAL CANCER METASTATIC
     Dosage: 170 MG Q2W, INTRAVENOUS NOS
     Route: 042
     Dates: start: 20020430, end: 20020430
  2. FLUOROURACIL [Suspect]
     Dosage: 3400 MG AS 46 HOURS CONTINUOUS INFUSION, Q2W, INTRAVENOUS NOS
     Route: 042
     Dates: start: 20020430, end: 20020502
  3. (LEUCOVORIN) - SOLUTION - 680 MG [Suspect]
     Dosage: 680 MG AS 2-HOUR INFUSION Q2W, INTRAVENOUS NOS
     Route: 042
     Dates: start: 20020430, end: 20020430

REACTIONS (5)
  - BLOOD SODIUM DECREASED [None]
  - DIARRHOEA [None]
  - NAUSEA [None]
  - PERFORMANCE STATUS DECREASED [None]
  - VOMITING [None]
